FAERS Safety Report 18110164 (Version 2)
Quarter: 2020Q3

REPORT INFORMATION
  Report Type: Spontaneous
  Country: IN (occurrence: CA)
  Receive Date: 20200804
  Receipt Date: 20200818
  Transmission Date: 20201103
  Serious: Yes (Other)
  Sender: FDA-Public Use
  Company Number: CA-ELI_LILLY_AND_COMPANY-CA202007010763

PATIENT
  Age: 63 Year
  Sex: Male
  Weight: 78.3 kg

DRUGS (4)
  1. GEMCITABINE HYDROCHLORIDE. [Suspect]
     Active Substance: GEMCITABINE HYDROCHLORIDE
     Indication: ADENOCARCINOMA PANCREAS
  2. PACLITAXEL. [Suspect]
     Active Substance: PACLITAXEL
     Indication: CUTANEOUS T-CELL LYMPHOMA
     Dosage: UNK UNK, CYCLICAL
     Route: 065
     Dates: start: 201710
  3. GEMCITABINE HYDROCHLORIDE. [Suspect]
     Active Substance: GEMCITABINE HYDROCHLORIDE
     Indication: CUTANEOUS T-CELL LYMPHOMA
     Dosage: UNK UNK, CYCLICAL
     Route: 065
     Dates: start: 201710
  4. PACLITAXEL. [Suspect]
     Active Substance: PACLITAXEL
     Indication: ADENOCARCINOMA PANCREAS

REACTIONS (2)
  - Neuropathy peripheral [Recovering/Resolving]
  - Hypoaesthesia [Recovering/Resolving]

NARRATIVE: CASE EVENT DATE: 201712
